FAERS Safety Report 10709500 (Version 1)
Quarter: 2015Q1

REPORT INFORMATION
  Report Type: Spontaneous
  Country: US (occurrence: None)
  Receive Date: 20150113
  Receipt Date: 20150113
  Transmission Date: 20150721
  Serious: Yes (Other)
  Sender: FDA-Public Use
  Company Number: None

PATIENT
  Age: 11 Year
  Sex: Male
  Weight: 32.66 kg

DRUGS (1)
  1. INTUNIV [Suspect]
     Active Substance: GUANFACINE HYDROCHLORIDE
     Indication: ANXIETY
     Dosage: 1/2 PILL, ONCE DAILY, TAKEN BY MOUTH
     Route: 048
     Dates: start: 20141224, end: 20141229

REACTIONS (5)
  - Eye pruritus [None]
  - Visual impairment [None]
  - Excessive eye blinking [None]
  - Blepharospasm [None]
  - Ocular hyperaemia [None]

NARRATIVE: CASE EVENT DATE: 20141229
